FAERS Safety Report 18624790 (Version 1)
Quarter: 2020Q4

REPORT INFORMATION
  Report Type: Report from Study
  Country: US (occurrence: US)
  Receive Date: 20201216
  Receipt Date: 20201216
  Transmission Date: 20210114
  Serious: Yes (Other)
  Sender: FDA-Public Use
  Company Number: US-SHIRE-US202013471

PATIENT
  Sex: Female

DRUGS (1)
  1. HUMAN IMMUNOGLOBULIN; HYALURONIDASE [Suspect]
     Active Substance: HUMAN IMMUNOGLOBULIN G\HYALURONIDASE RECOMBINANT HUMAN
     Indication: IMMUNODEFICIENCY COMMON VARIABLE
     Dosage: UNK
     Route: 065

REACTIONS (21)
  - Arthropod bite [Unknown]
  - Blood cholesterol increased [Unknown]
  - Lyme disease [Unknown]
  - Bone pain [Unknown]
  - Alopecia [Unknown]
  - Infusion site haemorrhage [Unknown]
  - Hypoaesthesia [Unknown]
  - Infusion site pain [Unknown]
  - Pulmonary pain [Unknown]
  - Urinary tract infection [Unknown]
  - Stress [Unknown]
  - Sinus disorder [Not Recovered/Not Resolved]
  - Cardiac disorder [Unknown]
  - Arthritis [Not Recovered/Not Resolved]
  - Rosacea [Not Recovered/Not Resolved]
  - Lung disorder [Unknown]
  - Systemic lupus erythematosus [Unknown]
  - Weight decreased [Unknown]
  - Thyroid mass [Unknown]
  - Herpes zoster [Unknown]
  - Malaise [Unknown]
